FAERS Safety Report 15400554 (Version 1)
Quarter: 2018Q4

REPORT INFORMATION
  Report Type: Spontaneous
  Country: US (occurrence: US)
  Receive Date: 20180919
  Receipt Date: 20180919
  Transmission Date: 20190204
  Serious: No
  Sender: FDA-Public Use
  Company Number: US-AUROBINDO-AUR-APL-2017-42400

PATIENT
  Age: 10 Year
  Sex: Male

DRUGS (1)
  1. MONTELUKAST CHEWABLE TABLETS 5MG [Suspect]
     Active Substance: MONTELUKAST SODIUM
     Indication: PRODUCT USED FOR UNKNOWN INDICATION
     Route: 065

REACTIONS (2)
  - Hypersensitivity [Unknown]
  - Urticaria [Unknown]
